FAERS Safety Report 4742128-2 (Version None)
Quarter: 2005Q3

REPORT INFORMATION
  Report Type: 
  Country: None (occurrence: None)
  Receive Date: 20050808
  Receipt Date: 20050729
  Transmission Date: 20060218
  Serious: Yes (Hospitalization)
  Sender: FDA-Public Use
  Company Number: 200513007BCC

PATIENT
  Age: 68 Year
  Sex: Female

DRUGS (3)
  1. ALEVE [Suspect]
     Indication: BACK PAIN
     Dosage: 440 MG, TID, ORAL
     Route: 048
  2. BLOOD PRESSURE MEDICATION [Concomitant]
  3. HORMONE REPLACEMENT THERAPY [Concomitant]

REACTIONS (2)
  - GASTRIC PERFORATION [None]
  - GASTROINTESTINAL HAEMORRHAGE [None]
